FAERS Safety Report 14110848 (Version 1)
Quarter: 2017Q4

REPORT INFORMATION
  Report Type: Spontaneous
  Country: US (occurrence: US)
  Receive Date: 20171020
  Receipt Date: 20171020
  Transmission Date: 20180321
  Serious: Yes (Hospitalization, Other)
  Sender: FDA-Public Use
  Company Number: US-TEVA-818264USA

PATIENT
  Sex: Male

DRUGS (6)
  1. OXYCODONE HYDROCHLORIDE. [Suspect]
     Active Substance: OXYCODONE HYDROCHLORIDE
     Route: 064
  2. MORPHINE [Suspect]
     Active Substance: MORPHINE
     Route: 064
  3. OXYMORPHONE [Suspect]
     Active Substance: OXYMORPHONE
     Route: 064
  4. ROXICODONE [Suspect]
     Active Substance: OXYCODONE HYDROCHLORIDE
     Route: 064
  5. OPANA [Suspect]
     Active Substance: OXYMORPHONE HYDROCHLORIDE
     Route: 064
  6. OXYCONTIN [Suspect]
     Active Substance: OXYCODONE HYDROCHLORIDE
     Route: 064

REACTIONS (9)
  - Drug dependence [Unknown]
  - Abnormal behaviour [Unknown]
  - Adverse event [Unknown]
  - Crying [Unknown]
  - Foetal exposure during pregnancy [Unknown]
  - Musculoskeletal stiffness [Unknown]
  - Selective eating disorder [Unknown]
  - Premature baby [Unknown]
  - Drug withdrawal syndrome neonatal [Unknown]
